FAERS Safety Report 11854756 (Version 1)
Quarter: 2015Q4

REPORT INFORMATION
  Report Type: Spontaneous
  Country: US (occurrence: None)
  Receive Date: 20151218
  Receipt Date: 20151218
  Transmission Date: 20160305
  Serious: Yes (Hospitalization)
  Sender: FDA-Public Use
  Company Number: None

PATIENT
  Sex: Male

DRUGS (2)
  1. XALKORI [Suspect]
     Active Substance: CRIZOTINIB
     Indication: NEOPLASM MALIGNANT
     Route: 048
     Dates: start: 20151107
  2. XALKORI [Suspect]
     Active Substance: CRIZOTINIB
     Indication: METASTASES TO BONE MARROW
     Route: 048
     Dates: start: 20151107

REACTIONS (4)
  - Peripheral swelling [None]
  - Abdominal discomfort [None]
  - Dizziness [None]
  - Fluid retention [None]

NARRATIVE: CASE EVENT DATE: 2015
